FAERS Safety Report 4620100-0 (Version None)
Quarter: 2005Q1

REPORT INFORMATION
  Report Type: 
  Country: None (occurrence: None)
  Receive Date: 20050328
  Receipt Date: 20050221
  Transmission Date: 20050727
  Serious: Yes (Hospitalization)
  Sender: FDA-Public Use
  Company Number: GB-BRISTOL-MYERS SQUIBB COMPANY-12872891

PATIENT
  Age: 70 Year
  Sex: Male
  Weight: 67 kg

DRUGS (6)
  1. PARAPLATIN [Suspect]
     Indication: NON-SMALL CELL LUNG CANCER
     Route: 042
  2. GEMCITABINE [Concomitant]
     Indication: LUNG NEOPLASM MALIGNANT
     Route: 042
     Dates: start: 20050204, end: 20050304
  3. VINORELBINE TARTRATE [Concomitant]
     Route: 042
  4. FELODIPINE [Concomitant]
     Indication: HYPERTENSION
     Dosage: DURATION OF THERAPY:  ^LONGER THAN 3 MONTHS^
     Route: 048
  5. ASPIRIN [Concomitant]
     Indication: HYPERTENSION
     Dosage: DURATION OF THERAPY:  ^LONGER THAN 3 MONTHS^
     Route: 048
  6. SIMVASTATIN [Concomitant]
     Indication: HYPERTENSION
     Dosage: DURATION OF THERAPY:  ^LONGER THAN 3 MONTHS^
     Route: 048

REACTIONS (8)
  - BLOOD CALCIUM DECREASED [None]
  - BLOOD OSMOLARITY DECREASED [None]
  - BLOOD SODIUM DECREASED [None]
  - CHILLS [None]
  - COUGH [None]
  - HAEMOGLOBIN DECREASED [None]
  - NEUTROPENIA [None]
  - WHITE BLOOD CELL COUNT DECREASED [None]
